FAERS Safety Report 23491973 (Version 1)
Quarter: 2024Q1

REPORT INFORMATION
  Report Type: Report from Study
  Country: US (occurrence: US)
  Receive Date: 20240207
  Receipt Date: 20240207
  Transmission Date: 20240410
  Serious: No
  Sender: FDA-Public Use
  Company Number: US-HRARD-2021000990

PATIENT
  Age: 62 Year
  Sex: Female

DRUGS (15)
  1. LYSODREN [Suspect]
     Active Substance: MITOTANE
     Indication: Adrenocortical carcinoma
     Dosage: 02 TABLETS TWICE DAILY
     Route: 048
     Dates: start: 20210817
  2. LYSODREN [Suspect]
     Active Substance: MITOTANE
     Indication: Adrenocortical carcinoma
     Dosage: 4 TABLETS IN THE MORNING AND 3 TABLETS IN THE EVENING
     Route: 048
     Dates: start: 202108
  3. LYSODREN [Suspect]
     Active Substance: MITOTANE
     Indication: Adrenocortical carcinoma
     Dosage: 02 TABLETS TWICE A DAY
     Route: 048
  4. ZYRTEC 10 mg, tablets [Concomitant]
     Indication: Product used for unknown indication
  5. TUMERIC 500 mg, capsules [Concomitant]
     Indication: Product used for unknown indication
  6. VITAMINE C 1000 mg tablets, [Concomitant]
     Indication: Product used for unknown indication
  7. VITAMINE D3 12000 Unit liquid [Concomitant]
     Indication: Product used for unknown indication
  8. BUPROPION [Concomitant]
     Active Substance: BUPROPION
     Indication: Product used for unknown indication
  9. Levothyroxine 0.75 mg [Concomitant]
     Indication: Product used for unknown indication
  10. Lidocaine/prilocaine cream 30 mg [Concomitant]
     Indication: Product used for unknown indication
  11. prochlorperazine  10 mg [Concomitant]
     Indication: Product used for unknown indication
  12. ondansetron ODT 8 mg [Concomitant]
     Indication: Product used for unknown indication
  13. Gemzar 1 gm inj, 1 vial [Concomitant]
     Indication: Product used for unknown indication
  14. Xeloda 500 mg tablets [Concomitant]
     Indication: Product used for unknown indication
  15. IMODIUM [Concomitant]
     Active Substance: LOPERAMIDE HYDROCHLORIDE
     Indication: Product used for unknown indication

REACTIONS (2)
  - Platelet count decreased [Recovered/Resolved]
  - Fatigue [Not Recovered/Not Resolved]

NARRATIVE: CASE EVENT DATE: 20210824
